FAERS Safety Report 18995629 (Version 3)
Quarter: 2021Q1

REPORT INFORMATION
  Report Type: Report from Study
  Country: JP (occurrence: JP)
  Receive Date: 20210310
  Receipt Date: 20210329
  Transmission Date: 20210420
  Serious: Yes (Hospitalization)
  Sender: FDA-Public Use
  Company Number: JP-SA-2020SA318258

PATIENT
  Age: 55 Year
  Sex: Male
  Weight: 78 kg

DRUGS (67)
  1. CARFILZOMIB [Suspect]
     Active Substance: CARFILZOMIB
     Indication: PLASMA CELL MYELOMA
     Dosage: 45 MG/M2
     Route: 065
     Dates: start: 20200730, end: 20201029
  2. CARFILZOMIB [Suspect]
     Active Substance: CARFILZOMIB
     Dosage: 86 MG, QD
     Route: 065
     Dates: start: 20201126, end: 20201127
  3. CARFILZOMIB [Suspect]
     Active Substance: CARFILZOMIB
     Dosage: 86 MG, QD
     Route: 065
     Dates: start: 20201210, end: 20201211
  4. CARFILZOMIB [Suspect]
     Active Substance: CARFILZOMIB
     Dosage: 86 MG, QD
     Route: 065
     Dates: start: 20210107, end: 20210108
  5. DEXAMETHASONE. [Suspect]
     Active Substance: DEXAMETHASONE
     Dosage: 12 MG, QD
     Route: 048
     Dates: start: 20200924, end: 20200925
  6. DEXAMETHASONE. [Suspect]
     Active Substance: DEXAMETHASONE
     Dosage: DAILY DOSE: 4 MG
     Route: 048
     Dates: start: 20210115, end: 20210115
  7. ACICLOVIR [Concomitant]
     Active Substance: ACYCLOVIR
     Indication: INFECTION PROPHYLAXIS
     Dosage: 1 DF, QD
     Route: 048
     Dates: start: 20180817
  8. HUMAN NORMAL IMMUNOGLOBULIN [Concomitant]
     Active Substance: HUMAN IMMUNOGLOBULIN G
     Dosage: UNK
     Route: 042
     Dates: start: 20200702, end: 20200702
  9. CARFILZOMIB [Suspect]
     Active Substance: CARFILZOMIB
     Dosage: 45 MG/M2 (DAYS 1, 2, 8, 9, 15, 16)
     Route: 065
     Dates: start: 20180307, end: 20200709
  10. CARFILZOMIB [Suspect]
     Active Substance: CARFILZOMIB
     Dosage: DAILY DOSE: 86 MG
     Route: 065
     Dates: start: 20210304, end: 20210304
  11. DEXAMETHASONE. [Suspect]
     Active Substance: DEXAMETHASONE
     Dosage: DAILY DOSE: 12 MG
     Route: 042
     Dates: start: 20200918
  12. DEXAMETHASONE. [Suspect]
     Active Substance: DEXAMETHASONE
     Dosage: 8 MG, QD
     Route: 042
     Dates: start: 20201126, end: 20201127
  13. DEXAMETHASONE. [Suspect]
     Active Substance: DEXAMETHASONE
     Dosage: 8 MG, QD
     Route: 042
     Dates: start: 20201203, end: 20201204
  14. AMLODIPINE OD TYK [Concomitant]
     Active Substance: AMLODIPINE BESYLATE
     Indication: HYPERTENSION
     Dosage: 3 DF, QD
     Route: 048
     Dates: start: 20200213
  15. PARACETAMOL [Concomitant]
     Active Substance: ACETAMINOPHEN
     Dosage: 800 MG/DAY
     Route: 048
     Dates: start: 20200618, end: 20200618
  16. HUMAN NORMAL IMMUNOGLOBULIN [Concomitant]
     Active Substance: HUMAN IMMUNOGLOBULIN G
     Dosage: UNK
     Route: 042
     Dates: start: 20201111, end: 20201111
  17. HUMAN NORMAL IMMUNOGLOBULIN [Concomitant]
     Active Substance: HUMAN IMMUNOGLOBULIN G
     Dosage: UNK
     Route: 042
     Dates: start: 20201225, end: 20201225
  18. HUMAN NORMAL IMMUNOGLOBULIN [Concomitant]
     Active Substance: HUMAN IMMUNOGLOBULIN G
     Dosage: UNK
     Route: 042
     Dates: start: 20210125, end: 20210125
  19. HUMAN NORMAL IMMUNOGLOBULIN [Concomitant]
     Active Substance: HUMAN IMMUNOGLOBULIN G
     Dosage: UNK
     Route: 042
     Dates: start: 20210219, end: 20210219
  20. ISATUXIMAB [Suspect]
     Active Substance: ISATUXIMAB
     Dosage: DAILY DOSE: 780 MG
     Route: 041
     Dates: start: 20201224, end: 20201224
  21. CARFILZOMIB [Suspect]
     Active Substance: CARFILZOMIB
     Dosage: 86 MG, QD
     Route: 065
     Dates: start: 20201203, end: 20201204
  22. CARFILZOMIB [Suspect]
     Active Substance: CARFILZOMIB
     Dosage: 86 MG, QD
     Route: 065
     Dates: start: 20210325, end: 20210325
  23. DEXAMETHASONE. [Suspect]
     Active Substance: DEXAMETHASONE
     Dosage: 12 MG
     Route: 048
     Dates: start: 20180307, end: 20200709
  24. DEXAMETHASONE. [Suspect]
     Active Substance: DEXAMETHASONE
     Dosage: DAILY DOSE: 12 MG
     Route: 042
     Dates: start: 20201016
  25. DEXAMETHASONE. [Suspect]
     Active Substance: DEXAMETHASONE
     Dosage: DAILY DOSE: 4 MG
     Route: 048
     Dates: start: 20210114, end: 20210114
  26. PARACETAMOL [Concomitant]
     Active Substance: ACETAMINOPHEN
     Dosage: 800 MG/DAY
     Route: 042
     Dates: start: 20200709, end: 20200709
  27. FAMOTIDINE. [Concomitant]
     Active Substance: FAMOTIDINE
     Dosage: 20 MG/DAY
     Route: 042
     Dates: start: 20200709, end: 20200709
  28. SHAKUYAKUKANZOTO [Concomitant]
     Active Substance: HERBALS
     Indication: PRODUCT USED FOR UNKNOWN INDICATION
     Dosage: UNK
     Route: 048
     Dates: start: 20190516
  29. ATORVASTATIN CALCIUM. [Concomitant]
     Active Substance: ATORVASTATIN CALCIUM
     Indication: HYPERLIPIDAEMIA
     Dosage: 1 DF, QD
     Route: 048
     Dates: start: 20200903
  30. ISATUXIMAB [Suspect]
     Active Substance: ISATUXIMAB
     Dosage: 800 MG, QOW
     Route: 041
     Dates: start: 20201126, end: 20201210
  31. ISATUXIMAB [Suspect]
     Active Substance: ISATUXIMAB
     Dosage: 800 MG, QOW
     Route: 041
     Dates: start: 20210218, end: 20210304
  32. CARFILZOMIB [Suspect]
     Active Substance: CARFILZOMIB
     Dosage: DAILY DOSE: 86 MG
     Route: 065
     Dates: start: 20210218, end: 20210218
  33. DEXAMETHASONE. [Suspect]
     Active Substance: DEXAMETHASONE
     Dosage: DOSE DECREASED TO 8 MG
     Route: 065
     Dates: start: 20200730, end: 20201029
  34. DEXAMETHASONE. [Suspect]
     Active Substance: DEXAMETHASONE
     Dosage: 8 MG, QD
     Route: 048
     Dates: start: 20201217, end: 20201218
  35. MIYA?BM [Concomitant]
     Active Substance: CLOSTRIDIUM BUTYRICUM SPORES STRAIN M-55
     Indication: CONSTIPATION PROPHYLAXIS
     Dosage: 1 DF, TID
     Route: 048
  36. DEXCHLORPHENIRAMINE MALEATE. [Concomitant]
     Active Substance: DEXCHLORPHENIRAMINE MALEATE
     Dosage: 5.0 MG/DAY
     Route: 042
     Dates: start: 20200618, end: 20200618
  37. DEXCHLORPHENIRAMINE MALEATE. [Concomitant]
     Active Substance: DEXCHLORPHENIRAMINE MALEATE
     Dosage: 20 MG/DAY
     Route: 042
     Dates: start: 20200709, end: 20200709
  38. ISATUXIMAB [Suspect]
     Active Substance: ISATUXIMAB
     Indication: PLASMA CELL MYELOMA
     Dosage: 10 MG/KG (DAY1, DAY15)
     Route: 041
     Dates: start: 20200730, end: 20201029
  39. ISATUXIMAB [Suspect]
     Active Substance: ISATUXIMAB
     Dosage: 10 MG/KG
     Route: 041
     Dates: start: 20180307, end: 20200709
  40. DEXAMETHASONE. [Suspect]
     Active Substance: DEXAMETHASONE
     Dosage: DAILY DOSE: 4 MG
     Route: 042
     Dates: start: 20210107, end: 20210108
  41. FEBURIC [Concomitant]
     Active Substance: FEBUXOSTAT
     Indication: HYPERURICAEMIA
     Dosage: 1 DF, QD
     Route: 048
  42. PARACETAMOL [Concomitant]
     Active Substance: ACETAMINOPHEN
     Dosage: 800 MG/DAY
     Route: 048
     Dates: start: 20200604, end: 20200604
  43. DEXCHLORPHENIRAMINE MALEATE. [Concomitant]
     Active Substance: DEXCHLORPHENIRAMINE MALEATE
     Dosage: 5 MG, QOW
     Route: 042
     Dates: start: 20201126, end: 20210107
  44. HUMAN NORMAL IMMUNOGLOBULIN [Concomitant]
     Active Substance: HUMAN IMMUNOGLOBULIN G
     Dosage: UNK
     Route: 042
     Dates: start: 20210121, end: 20210121
  45. CARFILZOMIB [Suspect]
     Active Substance: CARFILZOMIB
     Dosage: 86 MG, QD
     Route: 065
     Dates: start: 20210319, end: 20210319
  46. DEXAMETHASONE. [Suspect]
     Active Substance: DEXAMETHASONE
     Dosage: 12 MG, QD
     Route: 048
     Dates: start: 20201022, end: 20201023
  47. DEXAMETHASONE. [Suspect]
     Active Substance: DEXAMETHASONE
     Dosage: 4 MG, QD
     Route: 042
     Dates: start: 20201224, end: 20201225
  48. NEXIUM [Concomitant]
     Active Substance: ESOMEPRAZOLE MAGNESIUM
     Indication: GASTRITIS PROPHYLAXIS
     Dosage: 1 DF, QD
     Route: 048
  49. BAKTAR [Concomitant]
     Active Substance: SULFAMETHOXAZOLE\TRIMETHOPRIM
     Indication: INFECTION PROPHYLAXIS
     Dosage: 1 DF, BID
     Route: 048
     Dates: start: 20180308
  50. FAMOTIDINE. [Concomitant]
     Active Substance: FAMOTIDINE
     Dosage: 20 MG/DAY
     Route: 042
     Dates: start: 20200604, end: 20200604
  51. FAMOTIDINE. [Concomitant]
     Active Substance: FAMOTIDINE
     Dosage: 20 MG/DAY
     Route: 042
     Dates: start: 20200618, end: 20200618
  52. DEXCHLORPHENIRAMINE MALEATE. [Concomitant]
     Active Substance: DEXCHLORPHENIRAMINE MALEATE
     Dosage: 5 MG, QOW
     Route: 042
     Dates: start: 20201126, end: 20201224
  53. DEXCHLORPHENIRAMINE MALEATE. [Concomitant]
     Active Substance: DEXCHLORPHENIRAMINE MALEATE
     Dosage: 5 MG, QOW
     Route: 042
     Dates: start: 20201015, end: 20201029
  54. HUMAN NORMAL IMMUNOGLOBULIN [Concomitant]
     Active Substance: HUMAN IMMUNOGLOBULIN G
     Indication: PRODUCT USED FOR UNKNOWN INDICATION
     Dosage: UNK
     Route: 042
     Dates: start: 20200807, end: 20200807
  55. ISATUXIMAB [Suspect]
     Active Substance: ISATUXIMAB
     Dosage: DAILY DOSE: 780 MG
     Route: 041
     Dates: start: 20210107, end: 20210107
  56. CARFILZOMIB [Suspect]
     Active Substance: CARFILZOMIB
     Dosage: 86 MG, QD
     Route: 065
     Dates: start: 20201224, end: 20201225
  57. CARFILZOMIB [Suspect]
     Active Substance: CARFILZOMIB
     Dosage: 86 MG, QD
     Route: 065
     Dates: start: 20210318, end: 20210318
  58. DEXAMETHASONE. [Suspect]
     Active Substance: DEXAMETHASONE
     Indication: PLASMA CELL MYELOMA
     Dosage: 12 MG(DAY1,2,8,9,15,16)
     Route: 042
     Dates: start: 20180307, end: 20200709
  59. PARACETAMOL [Concomitant]
     Active Substance: ACETAMINOPHEN
     Indication: PROPHYLAXIS
     Dosage: 800 MG/DAY
     Route: 048
     Dates: start: 20200806, end: 20200806
  60. DEXCHLORPHENIRAMINE MALEATE. [Concomitant]
     Active Substance: DEXCHLORPHENIRAMINE MALEATE
     Dosage: 20 MG/DAY
     Route: 042
     Dates: start: 20200604, end: 20200604
  61. ISATUXIMAB [Suspect]
     Active Substance: ISATUXIMAB
     Dosage: 790 MG, QD
     Route: 041
     Dates: start: 20210318, end: 20210318
  62. DEXAMETHASONE. [Suspect]
     Active Substance: DEXAMETHASONE
     Dosage: 8 MG, QD
     Route: 042
     Dates: start: 20201210, end: 20201211
  63. REBAMIPIDE [Concomitant]
     Active Substance: REBAMIPIDE
     Indication: GASTRITIS PROPHYLAXIS
     Dosage: 1 DF, TID
     Route: 048
  64. FAMOTIDINE. [Concomitant]
     Active Substance: FAMOTIDINE
     Indication: PROPHYLAXIS
     Dosage: 20 MG/DAY
     Route: 042
     Dates: start: 20200806, end: 20200806
  65. DEXCHLORPHENIRAMINE MALEATE. [Concomitant]
     Active Substance: DEXCHLORPHENIRAMINE MALEATE
     Indication: PROPHYLAXIS
     Dosage: 5 MG/DAY
     Route: 042
     Dates: start: 20200806, end: 20200806
  66. DEXCHLORPHENIRAMINE MALEATE. [Concomitant]
     Active Substance: DEXCHLORPHENIRAMINE MALEATE
     Dosage: 5.0 MG/DAY
     Route: 042
     Dates: start: 20210304, end: 20210304
  67. HUMAN NORMAL IMMUNOGLOBULIN [Concomitant]
     Active Substance: HUMAN IMMUNOGLOBULIN G
     Dosage: UNK
     Route: 042
     Dates: start: 20200605, end: 20200605

REACTIONS (2)
  - Cytomegalovirus viraemia [Recovered/Resolved]
  - Cytomegalovirus viraemia [Recovering/Resolving]

NARRATIVE: CASE EVENT DATE: 20200820
